FAERS Safety Report 22126917 (Version 1)
Quarter: 2023Q1

REPORT INFORMATION
  Report Type: Spontaneous
  Country: US (occurrence: US)
  Receive Date: 20230322
  Receipt Date: 20230322
  Transmission Date: 20230417
  Serious: Yes (Other)
  Sender: FDA-Public Use
  Company Number: US-ALLERGAN-2239161US

PATIENT
  Age: 66 Year
  Sex: Male
  Weight: 83.914 kg

DRUGS (2)
  1. VUITY [Suspect]
     Active Substance: PILOCARPINE HYDROCHLORIDE
     Indication: Presbyopia
     Dosage: 2 GTT, PRN
     Route: 047
     Dates: start: 20221114, end: 20221118
  2. OCUSCI OMEGA 3 [Concomitant]
     Indication: Supplementation therapy
     Dosage: 2000 MG, QD
     Route: 048
     Dates: start: 20020101

REACTIONS (5)
  - Retinal tear [Not Recovered/Not Resolved]
  - Photopsia [Not Recovered/Not Resolved]
  - Vitreous floaters [Not Recovered/Not Resolved]
  - Photopsia [Not Recovered/Not Resolved]
  - Vitreous detachment [Not Recovered/Not Resolved]

NARRATIVE: CASE EVENT DATE: 20221101
